FAERS Safety Report 9342925 (Version 1)
Quarter: 2013Q2

REPORT INFORMATION
  Report Type: Spontaneous
  Country: US (occurrence: US)
  Receive Date: 20130611
  Receipt Date: 20130611
  Transmission Date: 20140414
  Serious: Yes (Other)
  Sender: FDA-Public Use
  Company Number: US-BAYER-2013-070198

PATIENT
  Age: 32 Year
  Sex: Male

DRUGS (1)
  1. ALEVE CAPLET [Suspect]

REACTIONS (5)
  - Melaena [None]
  - Haematochezia [None]
  - Headache [None]
  - Dizziness [None]
  - Pyrexia [None]
